FAERS Safety Report 11043134 (Version 2)
Quarter: 2015Q2

REPORT INFORMATION
  Report Type: Spontaneous
  Country: NG (occurrence: NG)
  Receive Date: 20150417
  Receipt Date: 20150501
  Transmission Date: 20150821
  Serious: Yes (Hospitalization)
  Sender: FDA-Public Use
  Company Number: NG-ACCORD-030138

PATIENT
  Age: 38 Year
  Sex: Female

DRUGS (7)
  1. TAXTAS DOCETAXEL [Suspect]
     Active Substance: DOCETAXEL
     Indication: BREAST CANCER
     Dosage: FIRST CYCLE.?RECEIVED INFUSION FOR 1HR 30MINS (90 MIN).
     Route: 042
     Dates: start: 20150228, end: 20150228
  2. CYCLOPHOSPHAMIDE/CYCLOPHOSPHAMIDE MONOHYDRATE [Concomitant]
     Route: 042
  3. EPIRUBICIN [Concomitant]
     Active Substance: EPIRUBICIN
     Route: 042
  4. FLUOROURACIL. [Concomitant]
     Active Substance: FLUOROURACIL
     Dosage: 5-FU
     Route: 042
  5. DEXAMETHASONE. [Concomitant]
     Active Substance: DEXAMETHASONE
     Indication: PREMEDICATION
     Dosage: TWICE?ALSO RECEIVED IV DEXAMETHASONE.
  6. PIRITON [Concomitant]
     Active Substance: CHLORPHENIRAMINE MALEATE
     Indication: PREMEDICATION
     Dosage: TWICE.?ALSO RECEIVED IV PIRITON 10MG.
  7. ZANTAC [Concomitant]
     Active Substance: RANITIDINE HYDROCHLORIDE
     Indication: PREMEDICATION
     Route: 042

REACTIONS (4)
  - Aplastic anaemia [Recovered/Resolved]
  - Hypersensitivity [Recovered/Resolved]
  - Back pain [Recovered/Resolved]
  - Oral pain [Recovered/Resolved]

NARRATIVE: CASE EVENT DATE: 20150228
